FAERS Safety Report 6356054-9 (Version None)
Quarter: 2009Q3

REPORT INFORMATION
  Report Type: 
  Country: None (occurrence: None)
  Receive Date: 20090910
  Receipt Date: 20090910
  Transmission Date: 20100115
  Serious: Yes (Hospitalization)
  Sender: FDA-Public Use
  Company Number: None

PATIENT
  Age: 52 Year
  Sex: Female
  Weight: 79.6 kg

DRUGS (1)
  1. CLONIDINE [Suspect]
     Dosage: 0.2 MG TID PO
     Route: 048
     Dates: start: 20050504, end: 20090722

REACTIONS (3)
  - ANGINA PECTORIS [None]
  - DIZZINESS [None]
  - HYPOTENSION [None]
